FAERS Safety Report 5740811-3 (Version None)
Quarter: 2008Q2

REPORT INFORMATION
  Report Type: 
  Country: None (occurrence: None)
  Receive Date: 20080516
  Receipt Date: 20080507
  Transmission Date: 20081010
  Serious: Yes (Death, Life-Threatening, Hospitalization)
  Sender: FDA-Public Use
  Company Number: GB-AMGEN-UK276679

PATIENT
  Sex: Male

DRUGS (2)
  1. PANITUMUMAB [Suspect]
     Indication: COLORECTAL CANCER
     Route: 042
     Dates: start: 20080220, end: 20080425
  2. IRINOTECAN HCL [Suspect]
     Route: 042
     Dates: start: 20080220, end: 20080425

REACTIONS (4)
  - ATRIAL FIBRILLATION [None]
  - COAGULOPATHY [None]
  - INTESTINAL ISCHAEMIA [None]
  - PERITONITIS [None]
